FAERS Safety Report 9527490 (Version 3)
Quarter: 2013Q4

REPORT INFORMATION
  Report Type: Spontaneous
  Country: US (occurrence: US)
  Receive Date: 20130917
  Receipt Date: 20131128
  Transmission Date: 20140711
  Serious: Yes (Other)
  Sender: FDA-Public Use
  Company Number: US-BRISTOL-MYERS SQUIBB COMPANY-19368018

PATIENT
  Sex: 0

DRUGS (1)
  1. YERVOY [Suspect]
     Dosage: 1 DF : 200MG/40ML

REACTIONS (1)
  - Body temperature increased [Unknown]
